FAERS Safety Report 5929495-9 (Version None)
Quarter: 2008Q4

REPORT INFORMATION
  Report Type: 
  Country: None (occurrence: None)
  Receive Date: 20081024
  Receipt Date: 20081014
  Transmission Date: 20090506
  Serious: Yes (Other)
  Sender: FDA-Public Use
  Company Number: A0751856A

PATIENT
  Age: 87 Year
  Sex: Female

DRUGS (12)
  1. ADVAIR DISKUS 100/50 [Suspect]
     Indication: ASTHMA
     Dosage: 1PUFF TWICE PER DAY
     Route: 055
     Dates: end: 20081009
  2. VENTOLIN [Concomitant]
     Indication: ASTHMA
     Dosage: 100MCG UNKNOWN
     Route: 055
     Dates: start: 20081003
  3. SPIRIVA [Concomitant]
     Indication: ASTHMA
     Dosage: 18MG UNKNOWN
     Route: 055
     Dates: start: 20081009
  4. ATIVAN [Concomitant]
     Indication: ANXIETY
     Dosage: .5MG UNKNOWN
     Route: 048
     Dates: start: 20080828
  5. XANAX [Concomitant]
     Indication: ANXIETY
     Dosage: .5MG UNKNOWN
     Route: 048
     Dates: start: 20080828
  6. CALCIUM+VITAMIN D+MAGNESIUM+ZINC [Concomitant]
     Indication: SUPPLEMENTATION THERAPY
     Route: 048
     Dates: start: 20080826
  7. ZOPICLONE [Concomitant]
     Indication: INSOMNIA
     Dosage: 7.5MG PER DAY
     Route: 048
     Dates: start: 20080826
  8. CALCIUM [Concomitant]
     Indication: SUPPLEMENTATION THERAPY
     Dosage: 500MG PER DAY
     Route: 048
     Dates: start: 20080826
  9. APO HYDRO [Concomitant]
     Indication: HYPERTENSION
     Dosage: 12.5MG PER DAY
     Route: 048
     Dates: start: 20080826
  10. SYNTHROID [Concomitant]
     Indication: HYPOTHYROIDISM
     Dosage: .05MG PER DAY
     Route: 048
     Dates: start: 20080826
  11. NORVASC [Concomitant]
     Indication: HYPERTENSION
     Dosage: 5MG PER DAY
     Route: 048
     Dates: start: 20080826
  12. ASPIRIN [Concomitant]
     Indication: ANTICOAGULANT THERAPY
     Dosage: 81MG PER DAY
     Route: 048

REACTIONS (3)
  - ASTHMA [None]
  - DRUG INEFFECTIVE [None]
  - WRONG TECHNIQUE IN DRUG USAGE PROCESS [None]
